FAERS Safety Report 5059235-X (Version None)
Quarter: 2006Q3

REPORT INFORMATION
  Report Type: 
  Country: None (occurrence: None)
  Receive Date: 20060718
  Receipt Date: 20060705
  Transmission Date: 20061208
  Serious: Yes (Death)
  Sender: FDA-Public Use
  Company Number: 2006084760

PATIENT
  Age: 61 Year
  Sex: Female
  Weight: 72 kg

DRUGS (5)
  1. SU-011,248 (SUNITINIB MALATE) [Suspect]
     Indication: METASTATIC RENAL CELL CARCINOMA
     Dosage: 50 MG, ONCE - INTERVAL: DAYLY), ORAL
     Route: 048
     Dates: start: 20060331, end: 20060427
  2. SU-011,248 (SUNITINIB MALATE) [Suspect]
     Indication: METASTATIC RENAL CELL CARCINOMA
     Dosage: 50 MG, ONCE - INTERVAL: DAYLY), ORAL
     Route: 048
     Dates: start: 20060512, end: 20060608
  3. SU-011,248 (SUNITINIB MALATE) [Suspect]
     Indication: METASTATIC RENAL CELL CARCINOMA
     Dosage: 50 MG, ONCE - INTERVAL: DAYLY), ORAL
     Route: 048
     Dates: start: 20060623, end: 20060703
  4. FORTECORTIN (DEXAMETHASONE) [Concomitant]
  5. BERLTHYROX (LEVOTHYROXINE SODIUM) [Concomitant]

REACTIONS (11)
  - ASTHENIA [None]
  - DYSGEUSIA [None]
  - FATIGUE [None]
  - HYPERTENSION [None]
  - LOSS OF CONSCIOUSNESS [None]
  - MALIGNANT NEOPLASM PROGRESSION [None]
  - METASTASES TO LUNG [None]
  - MUCOSAL INFLAMMATION [None]
  - PYREXIA [None]
  - SCAR [None]
  - SEPSIS [None]
